FAERS Safety Report 11398444 (Version 2)
Quarter: 2015Q4

REPORT INFORMATION
  Report Type: Spontaneous
  Country: US (occurrence: None)
  Receive Date: 20150818
  Receipt Date: 20151019
  Transmission Date: 20160304
  Serious: Yes (Hospitalization, Other)
  Sender: FDA-Public Use
  Company Number: ADR-2015-01562

PATIENT
  Age: 53 Year
  Sex: Male

DRUGS (2)
  1. LIORESAL [Suspect]
     Active Substance: BACLOFEN
     Indication: MUSCLE SPASTICITY
     Dosage: 118.9 MCG/ DAY
  2. BACLOFEN (ORAL) [Suspect]
     Active Substance: BACLOFEN
     Indication: MUSCLE SPASTICITY

REACTIONS (11)
  - Cerebrospinal fluid leakage [None]
  - Staphylococcal infection [None]
  - Infection in an immunocompromised host [None]
  - Cerebral ventricle dilatation [None]
  - Incision site infection [None]
  - CSF culture positive [None]
  - Sepsis [None]
  - No therapeutic response [None]
  - Wound dehiscence [None]
  - Deep vein thrombosis [None]
  - Medical device site infection [None]
